FAERS Safety Report 18564266 (Version 4)
Quarter: 2021Q1

REPORT INFORMATION
  Report Type: Report from Study
  Country: US (occurrence: US)
  Receive Date: 20201201
  Receipt Date: 20210120
  Transmission Date: 20210419
  Serious: Yes (Other)
  Sender: FDA-Public Use
  Company Number: NVSC2020US313536

PATIENT
  Age: 73 Year
  Sex: Male

DRUGS (2)
  1. ENTRESTO [Suspect]
     Active Substance: SACUBITRIL\VALSARTAN
     Dosage: 50 MG, QD (ONCE A DAY)
     Route: 048
  2. ENTRESTO [Suspect]
     Active Substance: SACUBITRIL\VALSARTAN
     Indication: PRODUCT USED FOR UNKNOWN INDICATION
     Dosage: 50 MG, BID (24/26 MG)
     Route: 048
     Dates: start: 20201121

REACTIONS (10)
  - Fatigue [Not Recovered/Not Resolved]
  - Dizziness [Unknown]
  - Product prescribing error [Unknown]
  - Hepatic enzyme increased [Unknown]
  - Confusional state [Unknown]
  - Discomfort [Unknown]
  - Vertigo [Unknown]
  - Mental impairment [Unknown]
  - Incorrect dose administered [Unknown]
  - Fluid overload [Unknown]

NARRATIVE: CASE EVENT DATE: 202011
